FAERS Safety Report 9358780 (Version 2)
Quarter: 2014Q1

REPORT INFORMATION
  Report Type: Report from Study
  Country: CA (occurrence: CA)
  Receive Date: 20130620
  Receipt Date: 20140228
  Transmission Date: 20141002
  Serious: Yes (Hospitalization)
  Sender: FDA-Public Use
  Company Number: CA-JNJFOC-20130607711

PATIENT
  Age: 41 Year
  Sex: Female

DRUGS (1)
  1. REMICADE [Suspect]
     Indication: COLITIS ULCERATIVE
     Dosage: 4 DOSES
     Route: 042
     Dates: start: 20130121, end: 20130501

REACTIONS (6)
  - Colitis ulcerative [Unknown]
  - Malaise [Unknown]
  - Pain [Unknown]
  - Pyrexia [Unknown]
  - Arthralgia [Unknown]
  - Asthenia [Unknown]
